FAERS Safety Report 24993412 (Version 1)
Quarter: 2025Q1

REPORT INFORMATION
  Report Type: Spontaneous
  Country: US (occurrence: US)
  Receive Date: 20250221
  Receipt Date: 20250221
  Transmission Date: 20250408
  Serious: Yes (Other)
  Sender: Alora Pharma
  Company Number: US-ACELLA PHARMACEUTICALS, LLC-2025ALO00062

PATIENT
  Age: 83 Year

DRUGS (2)
  1. CICLOPIROX [Suspect]
     Active Substance: CICLOPIROX
     Indication: Onychomycosis
     Route: 061
     Dates: start: 20240421
  2. CICLOPIROX [Suspect]
     Active Substance: CICLOPIROX
     Route: 061
     Dates: end: 202501

REACTIONS (2)
  - Rash pustular [Not Recovered/Not Resolved]
  - Rash pruritic [Unknown]

NARRATIVE: CASE EVENT DATE: 20250101
